FAERS Safety Report 4459560-7 (Version None)
Quarter: 2004Q3

REPORT INFORMATION
  Report Type: 
  Country: None (occurrence: None)
  Receive Date: 20040927
  Receipt Date: 20040827
  Transmission Date: 20050211
  Serious: Yes (Other)
  Sender: FDA-Public Use
  Company Number: DE-MERCK-0408DEU00206

PATIENT
  Age: 64 Year
  Sex: Male

DRUGS (6)
  1. ALLOPURINOL [Concomitant]
     Route: 065
     Dates: start: 20040101
  2. CYCLOSPORINE [Concomitant]
     Route: 048
     Dates: start: 20040101
  3. ZETIA [Suspect]
     Indication: HYPERCHOLESTEROLAEMIA
     Route: 048
     Dates: start: 20040310, end: 20040801
  4. METOPROLOL SUCCINATE [Concomitant]
     Route: 048
     Dates: start: 20040101
  5. PRAVASTATIN SODIUM [Concomitant]
     Indication: HYPERCHOLESTEROLAEMIA
     Route: 048
     Dates: start: 20040101, end: 20040801
  6. PREDNISONE [Concomitant]
     Route: 065
     Dates: start: 20040101

REACTIONS (4)
  - BLOOD CREATINE PHOSPHOKINASE INCREASED [None]
  - CONTUSION [None]
  - MYOGLOBIN BLOOD INCREASED [None]
  - PAIN IN EXTREMITY [None]
